FAERS Safety Report 4630464-X (Version None)
Quarter: 2005Q2

REPORT INFORMATION
  Report Type: 
  Country: None (occurrence: None)
  Receive Date: 20050406
  Receipt Date: 20050316
  Transmission Date: 20051028
  Serious: Yes (Hospitalization)
  Sender: FDA-Public Use
  Company Number: USA050393434

PATIENT
  Age: 69 Year
  Sex: Male

DRUGS (2)
  1. HUMULIN 70/30 [Suspect]
     Indication: DIABETES MELLITUS
     Dosage: 30 U/1 DAY
     Dates: start: 19990101
  2. FOSSREE [Concomitant]

REACTIONS (2)
  - CATARACT [None]
  - OSTEOPOROSIS [None]
